FAERS Safety Report 17381231 (Version 1)
Quarter: 2020Q1

REPORT INFORMATION
  Report Type: Spontaneous
  Country: US (occurrence: US)
  Receive Date: 20200206
  Receipt Date: 20200206
  Transmission Date: 20200409
  Serious: No
  Sender: FDA-Public Use
  Company Number: US-ABBVIE-19K-163-2779785-00

PATIENT
  Age: 27 Year
  Sex: Female
  Weight: 53.57 kg

DRUGS (2)
  1. LEVONORGESTREL (NON-ABBVIE) [Concomitant]
     Indication: CONTRACEPTION
  2. HUMIRA [Suspect]
     Active Substance: ADALIMUMAB
     Indication: PSORIASIS
     Dosage: STARTED PACK - TO CONTINUE TO THE 40MG
     Route: 058
     Dates: start: 20190510, end: 20190510

REACTIONS (1)
  - Injection site haemorrhage [Recovered/Resolved]

NARRATIVE: CASE EVENT DATE: 20190510
